FAERS Safety Report 20172342 (Version 4)
Quarter: 2022Q4

REPORT INFORMATION
  Report Type: Report from Study
  Country: US (occurrence: US)
  Receive Date: 20211210
  Receipt Date: 20221215
  Transmission Date: 20230113
  Serious: Yes (Other)
  Sender: FDA-Public Use
  Company Number: US-HORIZON THERAPEUTICS-HZN-2021-009395

PATIENT

DRUGS (3)
  1. RAYOS [Suspect]
     Active Substance: PREDNISONE
     Indication: Giant cell arteritis
     Dosage: 5 MG TAKE 1 TABLET BY MOUTH EVERY NIGHT AT BEDTIME
     Route: 065
     Dates: start: 20200404
  2. RAYOS [Suspect]
     Active Substance: PREDNISONE
     Indication: Polymyalgia rheumatica
     Dosage: 5 MG, ONE TABLET NIGHTLY
     Route: 065
     Dates: start: 20200804
  3. UNSPECIFIED INGREDIENT [Concomitant]
     Active Substance: UNSPECIFIED INGREDIENT
     Route: 065

REACTIONS (16)
  - Brain injury [Unknown]
  - Carotid artery occlusion [Unknown]
  - Back disorder [Unknown]
  - Dysstasia [Unknown]
  - Speech disorder [Unknown]
  - Dysphonia [Unknown]
  - Oropharyngeal discomfort [Unknown]
  - Nerve injury [Unknown]
  - Contusion [Unknown]
  - Scoliosis [Unknown]
  - Arthropathy [Unknown]
  - Pain [Unknown]
  - Arthralgia [Unknown]
  - Limb injury [Unknown]
  - Post procedural complication [Unknown]
  - Skin discolouration [Unknown]
